FAERS Safety Report 6133310-0 (Version None)
Quarter: 2009Q1

REPORT INFORMATION
  Report Type: 
  Country: None (occurrence: None)
  Receive Date: 20090325
  Receipt Date: 20090325
  Transmission Date: 20090719
  Serious: Yes (Life-Threatening, Other)
  Sender: FDA-Public Use
  Company Number: None

PATIENT
  Age: 46 Year
  Sex: Male
  Weight: 79.3795 kg

DRUGS (1)
  1. DOXYCYCLINE [Suspect]
     Indication: LYME DISEASE
     Dosage: 100MG TWICE A DAY PO
     Route: 048
     Dates: start: 20081206, end: 20090106

REACTIONS (25)
  - ANXIETY [None]
  - BEDRIDDEN [None]
  - BLOOD PRESSURE INCREASED [None]
  - CHEST PAIN [None]
  - DEPRESSION [None]
  - DIARRHOEA [None]
  - DYSPNOEA [None]
  - FEAR [None]
  - FEELING ABNORMAL [None]
  - FEELING COLD [None]
  - FEELING OF DESPAIR [None]
  - HEART RATE INCREASED [None]
  - HYPERAESTHESIA [None]
  - HYPOAESTHESIA [None]
  - HYPOPHAGIA [None]
  - IMPAIRED SELF-CARE [None]
  - MOBILITY DECREASED [None]
  - MUSCLE CONTRACTURE [None]
  - MUSCLE TWITCHING [None]
  - NAUSEA [None]
  - PANIC ATTACK [None]
  - SPEECH DISORDER [None]
  - TINNITUS [None]
  - TREMOR [None]
  - UNEVALUABLE EVENT [None]
